FAERS Safety Report 4688055-0 (Version None)
Quarter: 2005Q2

REPORT INFORMATION
  Report Type: 
  Country: None (occurrence: None)
  Receive Date: 20050610
  Receipt Date: 20050531
  Transmission Date: 20051028
  Serious: Yes (Hospitalization)
  Sender: FDA-Public Use
  Company Number: FR-ROCHE-406351

PATIENT
  Age: 72 Year
  Sex: Female

DRUGS (5)
  1. TICLID [Suspect]
     Indication: STENT PLACEMENT
     Route: 048
     Dates: start: 20050414, end: 20050420
  2. PLAVIX [Concomitant]
     Indication: STENT PLACEMENT
     Dosage: DRUG WAS RESTARTED FROM MARCH 2005 UNTIL 14 APRIL 2005 WITH A DAILY DOSE OF 150 MG AND FOR ONE MONT+
     Route: 048
     Dates: start: 20041222, end: 20050315
  3. KARDEGIC [Concomitant]
     Indication: STENT PLACEMENT
     Route: 048
     Dates: start: 20041222
  4. NEO-MERCAZOLE TAB [Concomitant]
     Dates: start: 20050110
  5. PRAVASTATIN [Concomitant]
     Route: 048
     Dates: start: 20041229

REACTIONS (2)
  - AGRANULOCYTOSIS [None]
  - DRUG RESISTANCE [None]
